FAERS Safety Report 13585484 (Version 1)
Quarter: 2017Q2

REPORT INFORMATION
  Report Type: Spontaneous
  Country: US (occurrence: US)
  Receive Date: 20170526
  Receipt Date: 20170526
  Transmission Date: 20170830
  Serious: No
  Sender: FDA-Public Use
  Company Number: US-GLAXOSMITHKLINE-US2017GSK078947

PATIENT
  Sex: Male

DRUGS (1)
  1. VENTOLIN [Suspect]
     Active Substance: ALBUTEROL SULFATE
     Indication: ASTHMA
     Dosage: 2 PUFF(S), UNK
     Dates: start: 201605

REACTIONS (5)
  - Insomnia [Unknown]
  - Drug interaction [Unknown]
  - Fatigue [Unknown]
  - Somnolence [Unknown]
  - Hypervigilance [Unknown]
